FAERS Safety Report 19516876 (Version 2)
Quarter: 2021Q4

REPORT INFORMATION
  Report Type: Spontaneous
  Country: US (occurrence: US)
  Receive Date: 20210711
  Receipt Date: 20211012
  Transmission Date: 20220303
  Serious: Yes (Hospitalization)
  Sender: FDA-Public Use
  Company Number: NVSC2021US153666

PATIENT
  Age: 60 Year
  Sex: Male

DRUGS (2)
  1. RANITIDINE [Suspect]
     Active Substance: RANITIDINE
     Indication: Product used for unknown indication
     Dosage: 150 MG, QD
     Route: 048
     Dates: start: 200901, end: 201910
  2. RANITIDINE [Suspect]
     Active Substance: RANITIDINE
     Indication: Product used for unknown indication
     Dosage: 150 MG, QD
     Route: 048
     Dates: start: 200901, end: 201910

REACTIONS (2)
  - Bladder cancer stage II [Recovering/Resolving]
  - Prostate cancer [Recovering/Resolving]

NARRATIVE: CASE EVENT DATE: 20161101
